FAERS Safety Report 4998481-8 (Version None)
Quarter: 2006Q2

REPORT INFORMATION
  Report Type: 
  Country: None (occurrence: None)
  Receive Date: 20060508
  Receipt Date: 20060427
  Transmission Date: 20061013
  Serious: Yes (Hospitalization)
  Sender: FDA-Public Use
  Company Number: 2006P1000238

PATIENT
  Age: 88 Year
  Sex: Male
  Weight: 83 kg

DRUGS (8)
  1. RETEPLASE (RETEPLASE) [Suspect]
     Indication: ACUTE MYOCARDIAL INFARCTION
     Dates: start: 20060214
  2. REOPRO [Suspect]
     Indication: ACUTE MYOCARDIAL INFARCTION
     Dates: start: 20060214
  3. ACETYLSALICYLIC ACID SRT [Concomitant]
  4. CLOPIDOGREL [Concomitant]
  5. SIMVASTATIN [Concomitant]
  6. CORUNO [Concomitant]
  7. LYSOX [Concomitant]
  8. LORAZEPAM [Concomitant]

REACTIONS (1)
  - CORONARY ARTERY STENOSIS [None]
